FAERS Safety Report 7150527-7 (Version None)
Quarter: 2010Q4

REPORT INFORMATION
  Report Type: 
  Country: None (occurrence: None)
  Receive Date: 20101124
  Receipt Date: 20101109
  Transmission Date: 20110411
  Serious: Yes (Hospitalization)
  Sender: FDA-Public Use
  Company Number: 020909

PATIENT
  Sex: Female
  Weight: 52.3 kg

DRUGS (6)
  1. CIMZIA [Suspect]
     Indication: CROHN'S DISEASE
     Dosage: (200 MG 1X/2 WEEKS SUBCUTANEOUS)
     Route: 058
     Dates: start: 20090301
  2. CIMZIA [Suspect]
     Indication: OFF LABEL USE
     Dosage: (200 MG 1X/2 WEEKS SUBCUTANEOUS)
     Route: 058
     Dates: start: 20090301
  3. FOLIC ACID [Concomitant]
  4. LOPERAMIDE [Concomitant]
  5. DIPHENHYDRAMINE [Concomitant]
  6. ONDANSETRON [Concomitant]

REACTIONS (2)
  - CONDITION AGGRAVATED [None]
  - CROHN'S DISEASE [None]
